FAERS Safety Report 25130461 (Version 1)
Quarter: 2025Q1

REPORT INFORMATION
  Report Type: Spontaneous
  Country: CH (occurrence: CH)
  Receive Date: 20250327
  Receipt Date: 20250327
  Transmission Date: 20250409
  Serious: Yes (Death, Hospitalization, Other)
  Sender: FRESENIUS KABI
  Company Number: CH-FreseniusKabi-FK202504697

PATIENT
  Age: 78 Year
  Sex: Female

DRUGS (3)
  1. ADALIMUMAB [Suspect]
     Active Substance: ADALIMUMAB
     Indication: Rheumatoid arthritis
     Dates: start: 202109, end: 202308
  2. ADALIMUMAB [Suspect]
     Active Substance: ADALIMUMAB
     Dates: start: 202309
  3. METHOTREXATE [Suspect]
     Active Substance: METHOTREXATE
     Indication: Rheumatoid arthritis
     Dates: start: 201911

REACTIONS (1)
  - Disseminated tuberculosis [Fatal]
